FAERS Safety Report 15218790 (Version 1)
Quarter: 2018Q3

REPORT INFORMATION
  Report Type: Spontaneous
  Country: TH (occurrence: TH)
  Receive Date: 20180731
  Receipt Date: 20180731
  Transmission Date: 20181010
  Serious: Yes (Other)
  Sender: FDA-Public Use
  Company Number: TH-AMGEN-THASP2018102333

PATIENT
  Sex: Male

DRUGS (1)
  1. ROMIPLOSTIM [Suspect]
     Active Substance: ROMIPLOSTIM
     Indication: IMMUNE SYSTEM DISORDER
     Dosage: 250 MUG, SINGLE
     Route: 058
     Dates: start: 20180212, end: 20180212

REACTIONS (1)
  - Off label use [Unknown]
